FAERS Safety Report 4484288-7 (Version None)
Quarter: 2004Q3

REPORT INFORMATION
  Report Type: 
  Country: None (occurrence: None)
  Receive Date: 20040921
  Receipt Date: 20040203
  Transmission Date: 20050211
  Serious: Yes (Other)
  Sender: FDA-Public Use
  Company Number: 163-20785-04020084

PATIENT
  Age: 47 Year
  Sex: Female

DRUGS (7)
  1. THALOMID [Suspect]
     Indication: THYROID CANCER METASTATIC
     Dosage: 200 MG, QHS, ORAL
     Route: 048
     Dates: start: 20040122
  2. CALCIUM (CALCIUM) [Concomitant]
  3. LEVOXYL [Concomitant]
  4. CYTOMEL [Concomitant]
  5. ATIVAN [Concomitant]
  6. BUSPAR [Concomitant]
  7. BETA BLOCKER (BETA BLOCKING AGENTS) [Concomitant]

REACTIONS (8)
  - BLOOD THYROID STIMULATING HORMONE INCREASED [None]
  - COUGH [None]
  - DYSPHONIA [None]
  - FACE OEDEMA [None]
  - HYPOAESTHESIA [None]
  - HYPOTHYROIDISM [None]
  - PARAESTHESIA [None]
  - SOMNOLENCE [None]
